FAERS Safety Report 9124955 (Version 2)
Quarter: 2013Q4

REPORT INFORMATION
  Report Type: Spontaneous
  Country: BR (occurrence: BR)
  Receive Date: 20130227
  Receipt Date: 20131119
  Transmission Date: 20140711
  Serious: Yes (Hospitalization, Other)
  Sender: FDA-Public Use
  Company Number: BR-ASTRAZENECA-2013SE11381

PATIENT
  Age: 588 Month
  Sex: Male
  Weight: 46.3 kg

DRUGS (10)
  1. CRESTOR [Suspect]
     Indication: BLOOD CHOLESTEROL INCREASED
     Route: 048
     Dates: start: 2012
  2. ATENOLOL [Suspect]
     Indication: HEART RATE IRREGULAR
     Route: 048
     Dates: end: 2011
  3. BRILINTA [Suspect]
     Indication: ISCHAEMIC HEART DISEASE PROPHYLAXIS
     Route: 048
     Dates: start: 201301
  4. ASA [Concomitant]
     Indication: ANTICOAGULANT THERAPY
     Route: 048
     Dates: start: 1991
  5. PURAN T4 [Concomitant]
     Indication: HYPOTHYROIDISM
     Route: 048
     Dates: start: 2005
  6. DEPOSTERON [Concomitant]
     Indication: HORMONE REPLACEMENT THERAPY
     Route: 048
     Dates: start: 2005
  7. MICARDIS [Concomitant]
     Route: 048
     Dates: start: 2011
  8. VYTORIN [Concomitant]
     Indication: BLOOD CHOLESTEROL INCREASED
     Route: 048
     Dates: start: 2012
  9. MONORCORDIL RETARD [Concomitant]
     Indication: ANGINA PECTORIS
     Route: 048
     Dates: start: 201208
  10. CONCOR [Concomitant]
     Indication: HEART RATE IRREGULAR
     Route: 048
     Dates: start: 2011

REACTIONS (4)
  - Myocardial infarction [Recovered/Resolved]
  - Bronchospasm [Recovered/Resolved]
  - Angina pectoris [Recovered/Resolved]
  - Skin discolouration [Not Recovered/Not Resolved]
